FAERS Safety Report 4848451-5 (Version None)
Quarter: 2005Q4

REPORT INFORMATION
  Report Type: 
  Country: None (occurrence: None)
  Receive Date: 20051208
  Receipt Date: 20050926
  Transmission Date: 20060501
  Serious: Yes (Hospitalization)
  Sender: FDA-Public Use
  Company Number: 2005PK01810

PATIENT
  Age: 778 Month
  Sex: Female
  Weight: 70 kg

DRUGS (2)
  1. ARIMIDEX [Suspect]
     Indication: BREAST CANCER
     Route: 048
     Dates: start: 20000101, end: 20050601
  2. TAMOXIFEN [Suspect]
     Indication: BREAST CANCER
     Dates: start: 19920101, end: 19970101

REACTIONS (5)
  - DRY MOUTH [None]
  - DRY THROAT [None]
  - UTERINE CANCER [None]
  - VAGINAL INFECTION [None]
  - VULVOVAGINAL DRYNESS [None]
